FAERS Safety Report 10422982 (Version 1)
Quarter: 2014Q3

REPORT INFORMATION
  Report Type: Spontaneous
  Country: US (occurrence: None)
  Receive Date: 20140709
  Receipt Date: 20140709
  Transmission Date: 20150326
  Serious: Yes (Other)
  Sender: FDA-Public Use
  Company Number: PHEH2013US026546

PATIENT
  Age: 51 Year
  Sex: Female

DRUGS (6)
  1. VITAMIN D (ERGOCALCIFEROL) [Concomitant]
     Active Substance: ERGOCALCIFEROL
  2. VITAMIN E [Concomitant]
     Active Substance: .ALPHA.-TOCOPHEROL
  3. GLEEVEC [Suspect]
     Active Substance: IMATINIB MESYLATE
  4. VITAMIN C [Concomitant]
     Active Substance: ASCORBIC ACID
  5. VITAMIN B COMPLEX [Concomitant]
     Active Substance: CYANOCOBALAMIN\DEXPANTHENOL\NIACINAMIDE\PYRIDOXINE HYDROCHLORIDE\RIBOFLAVIN 5^-PHOSPHATE SODIUM\THIAMINE HYDROCHLORIDE\VITAMIN B COMPLEX
  6. TASIGNA [Suspect]
     Active Substance: NILOTINIB

REACTIONS (10)
  - Rhinorrhoea [None]
  - Platelet count increased [None]
  - Rash [None]
  - Anxiety [None]
  - Disease recurrence [None]
  - Muscle spasms [None]
  - Nausea [None]
  - Arthralgia [None]
  - Eye haemorrhage [None]
  - Fatigue [None]
